FAERS Safety Report 4279461-7 (Version None)
Quarter: 2004Q1

REPORT INFORMATION
  Report Type: 
  Country: None (occurrence: None)
  Receive Date: 20040126
  Receipt Date: 20040126
  Transmission Date: 20041129
  Serious: Yes (Hospitalization)
  Sender: FDA-Public Use
  Company Number: None

PATIENT
  Age: 13 Year
  Sex: Male
  Weight: 63.5036 kg

DRUGS (1)
  1. ZOLOFT [Suspect]
     Indication: ANTIDEPRESSANT THERAPY
     Dates: start: 20031002, end: 20031028

REACTIONS (6)
  - DRUG WITHDRAWAL SYNDROME [None]
  - FEELING ABNORMAL [None]
  - HOMICIDAL IDEATION [None]
  - IATROGENIC INJURY [None]
  - OPPOSITIONAL DEFIANT DISORDER [None]
  - PSYCHOTIC DISORDER [None]
